FAERS Safety Report 7335953-5 (Version None)
Quarter: 2011Q1

REPORT INFORMATION
  Report Type: 
  Country: None (occurrence: None)
  Receive Date: 20110307
  Receipt Date: 20110301
  Transmission Date: 20110831
  Serious: Yes (Other)
  Sender: FDA-Public Use
  Company Number: ES-GENZYME-CAMP-1001433

PATIENT

DRUGS (4)
  1. CAMPATH [Suspect]
     Indication: LYMPHOPROLIFERATIVE DISORDER
     Dosage: 616 MG, UNK
     Route: 065
  2. CORTICOSTEROID NOS [Concomitant]
     Indication: PRODUCT USED FOR UNKNOWN INDICATION
  3. ACYCLOVIR [Concomitant]
     Indication: ANTIVIRAL PROPHYLAXIS
     Dosage: UNK
  4. VALACICLOVIR [Concomitant]
     Indication: ANTIVIRAL PROPHYLAXIS

REACTIONS (2)
  - GASTROINTESTINAL DISORDER [None]
  - CYTOMEGALOVIRUS INFECTION [None]
